FAERS Safety Report 5186580-X (Version None)
Quarter: 2006Q4

REPORT INFORMATION
  Report Type: 
  Country: None (occurrence: None)
  Receive Date: 20061213
  Receipt Date: 20061206
  Transmission Date: 20070319
  Serious: Yes (Death)
  Sender: FDA-Public Use
  Company Number: 150628USA

PATIENT
  Age: 41 Year
  Sex: Male

DRUGS (1)
  1. METHYLPREDNISOLONE ACETATE 80MG/ML SUSPENSION [Suspect]
     Dosage: 40 MG

REACTIONS (14)
  - BRAIN OEDEMA [None]
  - BRAIN STEM HAEMORRHAGE [None]
  - BRAIN STEM INFARCTION [None]
  - COMA [None]
  - COUGH [None]
  - DYSARTHRIA [None]
  - HYDROCEPHALUS [None]
  - INFLAMMATION [None]
  - NAUSEA [None]
  - NECROSIS [None]
  - POST PROCEDURAL COMPLICATION [None]
  - RESPIRATORY DISORDER [None]
  - VASOSPASM [None]
  - VOMITING [None]
